FAERS Safety Report 22174019 (Version 1)
Quarter: 2023Q2

REPORT INFORMATION
  Report Type: Spontaneous
  Country: CN (occurrence: CN)
  Receive Date: 20230404
  Receipt Date: 20230404
  Transmission Date: 20230722
  Serious: Yes (Other)
  Sender: FDA-Public Use
  Company Number: None

PATIENT
  Age: 53 Year
  Sex: Female
  Weight: 66 kg

DRUGS (9)
  1. CYCLOPHOSPHAMIDE [Suspect]
     Active Substance: CYCLOPHOSPHAMIDE
     Indication: B-cell type acute leukaemia
     Dosage: 0.6 G, DILUTED WITH 500 ML OF 0.9  % SODIUM CHLORIDE Q12H, INTRA PUMP INJECTION
     Route: 050
     Dates: start: 20230218, end: 20230220
  2. CYCLOPHOSPHAMIDE [Suspect]
     Active Substance: CYCLOPHOSPHAMIDE
     Indication: Acute lymphocytic leukaemia
  3. SODIUM CHLORIDE [Suspect]
     Active Substance: SODIUM CHLORIDE
     Indication: Medication dilution
     Dosage: 500 ML, CONCENTRATION: 0.9%, USED TO DILUTE 0.6 G OF CYCLOPHOSPHAMIDE, Q12H, INTRA PUMP INJECTION
     Route: 050
     Dates: start: 20230218, end: 20230220
  4. SODIUM CHLORIDE [Suspect]
     Active Substance: SODIUM CHLORIDE
     Dosage: 100 ML, CONCENTRATION: 0.9%, USED TO DILUTE 80 MG OF EPIRUBICIN HYDROCHLORIDE, QD, INTRA PUMP INJECT
     Route: 050
     Dates: start: 20230221, end: 20230221
  5. SODIUM CHLORIDE [Suspect]
     Active Substance: SODIUM CHLORIDE
     Dosage: 60 ML, CONCENTRATION: 0.9%, USED TO DILUTE 2 MG OF VINCRISTINE SULFATE, QW, INTRA PUMP INJECTION
     Route: 050
     Dates: start: 20230221, end: 20230227
  6. EPIRUBICIN HYDROCHLORIDE [Suspect]
     Active Substance: EPIRUBICIN HYDROCHLORIDE
     Indication: B-cell type acute leukaemia
     Dosage: 80 MG, DILUTED WITH 100 ML OF 0.9% SODIUM CHLORIDE QD, INTRA PUMP INJECTION
     Route: 050
     Dates: start: 20230221, end: 20230221
  7. EPIRUBICIN HYDROCHLORIDE [Suspect]
     Active Substance: EPIRUBICIN HYDROCHLORIDE
     Indication: Acute lymphocytic leukaemia
  8. VINCRISTINE SULFATE [Suspect]
     Active Substance: VINCRISTINE SULFATE
     Indication: B-cell type acute leukaemia
     Dosage: 2 MG, DILUTED WITH 60 ML OF 0.9% SODIUM CHLORIDE, QW, INTRA PUMP INJECTION
     Route: 050
     Dates: start: 20230221, end: 20230227
  9. VINCRISTINE SULFATE [Suspect]
     Active Substance: VINCRISTINE SULFATE
     Indication: Acute lymphocytic leukaemia

REACTIONS (2)
  - Myelosuppression [Recovering/Resolving]
  - Pancytopenia [Recovering/Resolving]

NARRATIVE: CASE EVENT DATE: 20230302
